FAERS Safety Report 4398241-5 (Version None)
Quarter: 2004Q3

REPORT INFORMATION
  Report Type: 
  Country: None (occurrence: None)
  Receive Date: 20040714
  Receipt Date: 20040714
  Transmission Date: 20050211
  Serious: No
  Sender: FDA-Public Use
  Company Number: None

PATIENT

DRUGS (1)
  1. VIAGRA [Suspect]

REACTIONS (2)
  - HIV INFECTION [None]
  - SEXUALLY TRANSMITTED DISEASE [None]
